FAERS Safety Report 25106441 (Version 3)
Quarter: 2025Q4

REPORT INFORMATION
  Report Type: Spontaneous
  Country: US (occurrence: US)
  Receive Date: 20250321
  Receipt Date: 20251014
  Transmission Date: 20260118
  Serious: Yes (Life-Threatening, Other)
  Sender: BAXTER
  Company Number: US-BAXTER-2025BAX012735

PATIENT
  Sex: Male

DRUGS (3)
  1. NOREPINEPHRINE BITARTRATE [Suspect]
     Active Substance: NOREPINEPHRINE BITARTRATE
     Indication: Blood pressure decreased
     Dosage: UNK, AT THE RATE OF 10MCG/HR
     Route: 065
  2. NOREPINEPHRINE BITARTRATE [Suspect]
     Active Substance: NOREPINEPHRINE BITARTRATE
     Indication: Mean arterial pressure decreased
  3. PROPOFOL [Suspect]
     Active Substance: PROPOFOL
     Dosage: VARIABLE RATE , AT 10.7 ML/HR, WITH 76.7ML VTBI (VOLUME TO BE INFUSED)/ VTBI 90ML
     Route: 065

REACTIONS (5)
  - Unresponsive to stimuli [Unknown]
  - Pupillary light reflex tests abnormal [Unknown]
  - Blood pressure decreased [Unknown]
  - Incorrect drug administration rate [Unknown]
  - Device power source issue [Unknown]

NARRATIVE: CASE EVENT DATE: 20250223
